FAERS Safety Report 6094202-9 (Version None)
Quarter: 2009Q1

REPORT INFORMATION
  Report Type: 
  Country: None (occurrence: None)
  Receive Date: 20090224
  Receipt Date: 20090224
  Transmission Date: 20090719
  Serious: No
  Sender: FDA-Public Use
  Company Number: None

PATIENT
  Age: 52 Year
  Sex: Female
  Weight: 89.8122 kg

DRUGS (1)
  1. LIPITOR [Suspect]
     Indication: BLOOD CHOLESTEROL INCREASED
     Dosage: 40 MG DAILY PO
     Route: 048
     Dates: start: 20050110, end: 20080110

REACTIONS (7)
  - ACTIVITIES OF DAILY LIVING IMPAIRED [None]
  - ARTHRALGIA [None]
  - GAIT DISTURBANCE [None]
  - MEMORY IMPAIRMENT [None]
  - MUSCULOSKELETAL PAIN [None]
  - MYALGIA [None]
  - PAIN IN EXTREMITY [None]
